FAERS Safety Report 23575797 (Version 1)
Quarter: 2024Q1

REPORT INFORMATION
  Report Type: Spontaneous
  Country: US (occurrence: US)
  Receive Date: 20240228
  Receipt Date: 20240228
  Transmission Date: 20240410
  Serious: No
  Sender: FDA-Public Use
  Company Number: US-IPSEN Group, Research and Development-2024-02846

PATIENT
  Sex: Male
  Weight: 88.9 kg

DRUGS (16)
  1. TAZVERIK [Suspect]
     Active Substance: TAZEMETOSTAT HYDROBROMIDE
     Indication: Soft tissue sarcoma
     Dosage: 800 MG TWICE A DAY
     Route: 048
     Dates: start: 20210810
  2. ACETAMINOPHEN [Concomitant]
     Active Substance: ACETAMINOPHEN
  3. ACYCLOVIR [Concomitant]
     Active Substance: ACYCLOVIR
  4. DEXAMETHASONE [Concomitant]
     Active Substance: DEXAMETHASONE
  5. DOCUSATE SODIUM [Concomitant]
     Active Substance: DOCUSATE SODIUM
  6. FLUCONAZOLE [Concomitant]
     Active Substance: FLUCONAZOLE
  7. IBUPROFEN [Concomitant]
     Active Substance: IBUPROFEN
  8. LORAZEPAM [Concomitant]
     Active Substance: LORAZEPAM
  9. MESNA [Concomitant]
     Active Substance: MESNA
  10. METHOCARBAMOL [Concomitant]
     Active Substance: METHOCARBAMOL
  11. LIDOCAINE VISCOUS HCL [Concomitant]
  12. MIRTAZAPINE [Concomitant]
     Active Substance: MIRTAZAPINE
  13. NYSTATIN [Concomitant]
     Active Substance: NYSTATIN
  14. OLANZAPINE [Concomitant]
     Active Substance: OLANZAPINE
  15. OXYCODONE HYDROCHLORIDE [Concomitant]
     Active Substance: OXYCODONE HYDROCHLORIDE
  16. PROCHLORPERAZINE MALEATE [Concomitant]
     Active Substance: PROCHLORPERAZINE MALEATE

REACTIONS (1)
  - Cellulitis [Recovering/Resolving]
